FAERS Safety Report 4328440-X (Version None)
Quarter: 2004Q1

REPORT INFORMATION
  Report Type: 
  Country: None (occurrence: None)
  Receive Date: 20040324
  Receipt Date: 20030805
  Transmission Date: 20041129
  Serious: Yes (Hospitalization)
  Sender: FDA-Public Use
  Company Number: K200301300

PATIENT
  Age: 73 Year
  Sex: Female

DRUGS (7)
  1. ALTACE [Suspect]
     Indication: HYPERTENSION
     Dosage: 5 MG, QD, ORAL
     Route: 048
     Dates: start: 20021101, end: 20030501
  2. PROPRANOLOL [Concomitant]
  3. MULTIVITAMINS (THIAMINE HYDROCHLORIDE, RIBOFLAVIN, RETINOL, PANTHENOL, [Concomitant]
  4. CALCIUM (CALCIUM) [Concomitant]
  5. ESTRACE [Concomitant]
  6. SYNTHROID [Concomitant]
  7. ZOCOR [Concomitant]

REACTIONS (4)
  - BLOOD CREATININE INCREASED [None]
  - BLOOD UREA INCREASED [None]
  - RENAL FAILURE ACUTE [None]
  - SYNCOPE [None]
